FAERS Safety Report 9454203 (Version 2)
Quarter: 2014Q1

REPORT INFORMATION
  Report Type: Spontaneous
  Country: FR (occurrence: FR)
  Receive Date: 20130812
  Receipt Date: 20140115
  Transmission Date: 20141002
  Serious: Yes (Other)
  Sender: FDA-Public Use
  Company Number: FR-ELI_LILLY_AND_COMPANY-FR201308000638

PATIENT
  Age: 74 Year
  Sex: Female
  Weight: 100.5 kg

DRUGS (9)
  1. UMULINE NPH [Suspect]
     Indication: PRODUCT USED FOR UNKNOWN INDICATION
     Dosage: 46 IU, SINGLE
     Route: 058
     Dates: start: 20130524, end: 20130524
  2. HUMALOG [Concomitant]
  3. LEVEMIR [Concomitant]
  4. ATORVASTATIN [Concomitant]
     Indication: DYSLIPIDAEMIA
     Dosage: 20 MG, QD
     Route: 048
     Dates: start: 201201
  5. PREVISCAN                          /00789001/ [Concomitant]
     Dosage: UNK
     Route: 048
     Dates: start: 201201
  6. CANDESARTAN [Concomitant]
     Indication: HYPERTENSION
     Dosage: 12 MG, QD
     Route: 048
     Dates: start: 201201
  7. DIGOXINE [Concomitant]
     Indication: CARDIAC FAILURE
     Dosage: 0.25 DF, QD
     Dates: start: 201201
  8. LASILIX                            /00032601/ [Concomitant]
     Dosage: 125 DF, QD
     Route: 048
  9. SYMBICORT [Concomitant]
     Dosage: UNK
     Dates: start: 201201

REACTIONS (5)
  - Syncope [Unknown]
  - Vertigo [Unknown]
  - Dyspnoea [Unknown]
  - Rash erythematous [Recovered/Resolved]
  - Pruritus generalised [Recovered/Resolved]
